FAERS Safety Report 23952178 (Version 2)
Quarter: 2025Q2

REPORT INFORMATION
  Report Type: Spontaneous
  Country: US (occurrence: US)
  Receive Date: 20240607
  Receipt Date: 20250511
  Transmission Date: 20250717
  Serious: No
  Sender: SANOFI AVENTIS
  Company Number: US-SA-SAC20240604001114

PATIENT
  Age: 31 Year
  Sex: Female
  Weight: 100 kg

DRUGS (6)
  1. DUPIXENT [Suspect]
     Active Substance: DUPILUMAB
     Indication: Dermatitis atopic
     Dosage: 300 MG, QOW
     Route: 058
     Dates: start: 2018
  2. DUPIXENT [Suspect]
     Active Substance: DUPILUMAB
     Dosage: 300 MG, Q3W
     Route: 058
     Dates: start: 202201
  3. EPINEPHRINE [Concomitant]
     Active Substance: EPINEPHRINE
  4. FLUOXETINE [Concomitant]
     Active Substance: FLUOXETINE HYDROCHLORIDE
  5. TRIAMCINOLONE ACETONIDE [Concomitant]
     Active Substance: TRIAMCINOLONE ACETONIDE
  6. IBUPROFEN [Concomitant]
     Active Substance: IBUPROFEN

REACTIONS (2)
  - Maternal exposure during pregnancy [Unknown]
  - Off label use [Unknown]

NARRATIVE: CASE EVENT DATE: 20220101
